FAERS Safety Report 22311896 (Version 7)
Quarter: 2025Q1

REPORT INFORMATION
  Report Type: Spontaneous
  Country: US (occurrence: US)
  Receive Date: 20230512
  Receipt Date: 20250305
  Transmission Date: 20250409
  Serious: Yes (Hospitalization)
  Sender: ELI LILLY AND COMPANY
  Company Number: US-ELI_LILLY_AND_COMPANY-US202305005397

PATIENT
  Age: 56 Year
  Sex: Female
  Weight: 63.039 kg

DRUGS (17)
  1. MOUNJARO [Suspect]
     Active Substance: TIRZEPATIDE
     Indication: Glucose tolerance impaired
     Dosage: 2.5 MG, WEEKLY (1/W)
     Route: 065
     Dates: start: 20220901
  2. MOUNJARO [Suspect]
     Active Substance: TIRZEPATIDE
     Indication: Glucose tolerance impaired
     Dosage: 2.5 MG, WEEKLY (1/W)
     Route: 065
     Dates: start: 20220901
  3. MOUNJARO [Suspect]
     Active Substance: TIRZEPATIDE
     Indication: Glucose tolerance impaired
     Dosage: 2.5 MG, WEEKLY (1/W)
     Route: 065
     Dates: start: 20220901
  4. MOUNJARO [Suspect]
     Active Substance: TIRZEPATIDE
     Indication: Glucose tolerance impaired
     Dosage: 2.5 MG, WEEKLY (1/W)
     Route: 065
     Dates: start: 20220901
  5. MOUNJARO [Suspect]
     Active Substance: TIRZEPATIDE
     Indication: Menopausal symptoms
  6. MOUNJARO [Suspect]
     Active Substance: TIRZEPATIDE
     Indication: Menopausal symptoms
  7. MOUNJARO [Suspect]
     Active Substance: TIRZEPATIDE
     Indication: Menopausal symptoms
  8. MOUNJARO [Suspect]
     Active Substance: TIRZEPATIDE
     Indication: Menopausal symptoms
  9. MOUNJARO [Suspect]
     Active Substance: TIRZEPATIDE
     Indication: Glucose tolerance impaired
     Dosage: 5 MG, WEEKLY (1/W)
     Route: 065
     Dates: end: 20230218
  10. MOUNJARO [Suspect]
     Active Substance: TIRZEPATIDE
     Indication: Glucose tolerance impaired
     Dosage: 5 MG, WEEKLY (1/W)
     Route: 065
     Dates: end: 20230218
  11. MOUNJARO [Suspect]
     Active Substance: TIRZEPATIDE
     Indication: Glucose tolerance impaired
     Dosage: 5 MG, WEEKLY (1/W)
     Route: 065
     Dates: end: 20230218
  12. MOUNJARO [Suspect]
     Active Substance: TIRZEPATIDE
     Indication: Glucose tolerance impaired
     Dosage: 5 MG, WEEKLY (1/W)
     Route: 065
     Dates: end: 20230218
  13. MOUNJARO [Suspect]
     Active Substance: TIRZEPATIDE
     Indication: Menopausal symptoms
  14. MOUNJARO [Suspect]
     Active Substance: TIRZEPATIDE
     Indication: Menopausal symptoms
  15. MOUNJARO [Suspect]
     Active Substance: TIRZEPATIDE
     Indication: Menopausal symptoms
  16. MOUNJARO [Suspect]
     Active Substance: TIRZEPATIDE
     Indication: Menopausal symptoms
  17. ADVIL [Concomitant]
     Active Substance: IBUPROFEN
     Indication: Product used for unknown indication

REACTIONS (3)
  - Cholelithiasis [Unknown]
  - Cholecystitis acute [Unknown]
  - Off label use [Unknown]
